FAERS Safety Report 8894469 (Version 1)
Quarter: 2012Q4

REPORT INFORMATION
  Report Type: 
  Country: US (occurrence: US)
  Receive Date: 20121108
  Receipt Date: 20121108
  Transmission Date: 20130627
  Serious: Yes (Life-Threatening)
  Sender: FDA-Public Use
  Company Number: US-ACTELION-A-US2012-61907

PATIENT
  Age: 24 Year
  Sex: Female

DRUGS (3)
  1. TRACLEER [Suspect]
     Indication: PULMONARY ARTERIAL HYPERTENSION
     Dosage: UNK
     Route: 048
  2. REMODULIN [Suspect]
  3. ADCIRCA [Concomitant]

REACTIONS (6)
  - Pallor [Unknown]
  - Sluggishness [Unknown]
  - Feeling cold [Unknown]
  - Feeling hot [Unknown]
  - Flushing [Unknown]
  - Abdominal discomfort [Unknown]
